FAERS Safety Report 11935212 (Version 1)
Quarter: 2016Q1

REPORT INFORMATION
  Report Type: Spontaneous
  Country: NO (occurrence: NO)
  Receive Date: 20160121
  Receipt Date: 20160121
  Transmission Date: 20160526
  Serious: Yes (Hospitalization, Other)
  Sender: FDA-Public Use
  Company Number: NO-BRISTOL-MYERS SQUIBB COMPANY-12166526

PATIENT
  Age: 28 Year
  Sex: Female

DRUGS (6)
  1. PITOCIN [Suspect]
     Active Substance: OXYTOCIN
     Indication: PRODUCT USED FOR UNKNOWN INDICATION
     Dosage: 1 DF, UNK
     Route: 042
     Dates: start: 20021206, end: 20021206
  2. DEXTRAN 1 [Concomitant]
     Active Substance: DEXTRAN 1
     Indication: PRODUCT USED FOR UNKNOWN INDICATION
     Dosage: 150 MG/ML
     Route: 065
     Dates: start: 20021206, end: 20021206
  3. MACRODEX [Suspect]
     Active Substance: DEXTRAN 70
     Indication: THROMBOSIS PROPHYLAXIS
     Dosage: 500 ML, UNK
     Route: 042
     Dates: start: 20021206, end: 20021206
  4. LEPTANAL [Suspect]
     Active Substance: FENTANYL CITRATE
     Indication: EPIDURAL ANAESTHESIA
     Dosage: 100 ?G, UNK
     Route: 008
     Dates: start: 20021206
  5. PENTREXYL [Suspect]
     Active Substance: AMPICILLIN
     Indication: ANTIBIOTIC PROPHYLAXIS
     Dosage: 2 G, UNK
     Route: 042
     Dates: start: 20021206, end: 20021206
  6. XYLOCAINE + ADRENALINE [Suspect]
     Active Substance: EPINEPHRINE BITARTRATE\LIDOCAINE HYDROCHLORIDE
     Indication: EPIDURAL ANAESTHESIA
     Dosage: UNK
     Route: 008
     Dates: start: 20021206

REACTIONS (8)
  - Flushing [Recovered/Resolved]
  - Pregnancy [Recovered/Resolved]
  - Caesarean section [Unknown]
  - Anaphylactic reaction [Recovered/Resolved]
  - Hypotension [Recovered/Resolved]
  - Dyspnoea [Recovered/Resolved]
  - Live birth [Unknown]
  - Chest pain [Recovered/Resolved]

NARRATIVE: CASE EVENT DATE: 20021206
